FAERS Safety Report 6982859-7 (Version None)
Quarter: 2010Q3

REPORT INFORMATION
  Report Type: 
  Country: None (occurrence: None)
  Receive Date: 20100914
  Receipt Date: 20100331
  Transmission Date: 20110219
  Serious: Yes (Other)
  Sender: FDA-Public Use
  Company Number: US-PFIZER INC-2010042079

PATIENT
  Sex: Male
  Weight: 81.633 kg

DRUGS (5)
  1. LYRICA [Suspect]
     Indication: LIMB DISCOMFORT
     Dosage: 75 MG, 2X/DAY
     Route: 048
     Dates: start: 20100329, end: 20100330
  2. PLAVIX [Concomitant]
     Dosage: UNK
  3. GLIMEPIRIDE [Concomitant]
     Dosage: 2 MG, 1X/DAY
  4. ACEON [Concomitant]
     Dosage: 2 MG, 1X/DAY
  5. ACETYLSALICYLIC ACID [Concomitant]
     Dosage: 81 MG, UNK

REACTIONS (2)
  - CHEST PAIN [None]
  - INSOMNIA [None]
